FAERS Safety Report 5040724-9 (Version None)
Quarter: 2006Q3

REPORT INFORMATION
  Report Type: 
  Country: None (occurrence: None)
  Receive Date: 20060703
  Receipt Date: 20060623
  Transmission Date: 20061208
  Serious: Yes (Hospitalization)
  Sender: FDA-Public Use
  Company Number: PHBS2006JP09593

PATIENT

DRUGS (1)
  1. TEGRETOL [Suspect]
     Dosage: 49 TABLETS, ONCE/SINGLE
     Route: 048

REACTIONS (2)
  - COMA [None]
  - SUICIDE ATTEMPT [None]
